FAERS Safety Report 7789282-6 (Version None)
Quarter: 2011Q3

REPORT INFORMATION
  Report Type: 
  Country: None (occurrence: None)
  Receive Date: 20110930
  Receipt Date: 20110928
  Transmission Date: 20111222
  Serious: Yes (Hospitalization)
  Sender: FDA-Public Use
  Company Number: US-GLAXOSMITHKLINE-A0840381A

PATIENT
  Age: 70 Year
  Sex: Female
  Weight: 116.4 kg

DRUGS (2)
  1. AVANDIA [Suspect]
     Indication: DIABETES MELLITUS
     Route: 048
     Dates: start: 20020101, end: 20070101
  2. AVANDAMET [Suspect]
     Indication: DIABETES MELLITUS
     Route: 048
     Dates: end: 20070101

REACTIONS (4)
  - ANEURYSM [None]
  - CONDITION AGGRAVATED [None]
  - CARDIOMEGALY [None]
  - CARDIAC VALVE DISEASE [None]
